FAERS Safety Report 4818632-5 (Version None)
Quarter: 2005Q4

REPORT INFORMATION
  Report Type: 
  Country: None (occurrence: None)
  Receive Date: 20051101
  Receipt Date: 20051028
  Transmission Date: 20060501
  Serious: Yes (Hospitalization, Other)
  Sender: FDA-Public Use
  Company Number: 200512170GDS

PATIENT
  Age: 74 Year
  Sex: Male

DRUGS (3)
  1. AVELOX [Suspect]
     Indication: LUNG INFECTION
     Dosage: 400 MG, QD; ORAL
     Route: 048
     Dates: start: 20050712
  2. TAZOCIN [Concomitant]
  3. MEPAM (MEROPENEM) [Concomitant]

REACTIONS (7)
  - ASTHMA [None]
  - DIARRHOEA [None]
  - GASTRIC HAEMORRHAGE [None]
  - HENOCH-SCHONLEIN PURPURA [None]
  - HYPERSENSITIVITY [None]
  - NEPHRITIS [None]
  - URINARY TRACT INFECTION [None]
